FAERS Safety Report 9745998 (Version 1)
Quarter: 2013Q4

REPORT INFORMATION
  Report Type: Spontaneous
  Country: FR (occurrence: FR)
  Receive Date: 20131211
  Receipt Date: 20131211
  Transmission Date: 20140711
  Serious: Yes (Hospitalization)
  Sender: FDA-Public Use
  Company Number: FR-ASTRAZENECA-2013SE88674

PATIENT
  Age: 22008 Day
  Sex: Male

DRUGS (12)
  1. INEXIUM [Suspect]
     Route: 048
     Dates: start: 20130731, end: 20131107
  2. ENDOXAN [Suspect]
     Route: 042
     Dates: start: 20130814, end: 20131002
  3. RENVELA [Suspect]
     Route: 048
     Dates: start: 20131031, end: 20131107
  4. BISOPROLOL [Concomitant]
  5. PREDNISONE [Concomitant]
  6. LEVEMIR [Concomitant]
  7. SODIC BICARBONATE [Concomitant]
  8. LASILIX [Concomitant]
  9. REPAGLINIDE [Concomitant]
  10. ARANESP [Concomitant]
  11. VENOFER [Concomitant]
  12. CALCIUM FOLINATE [Concomitant]

REACTIONS (5)
  - Asthenia [Unknown]
  - Pyrexia [Recovered/Resolved]
  - Diarrhoea [Unknown]
  - Neutropenia [Recovered/Resolved]
  - Rash erythematous [Unknown]
